FAERS Safety Report 9974155 (Version 1)
Quarter: 2014Q1

REPORT INFORMATION
  Report Type: Report from Study
  Country: US (occurrence: US)
  Receive Date: 20140306
  Receipt Date: 20140306
  Transmission Date: 20141002
  Serious: No
  Sender: FDA-Public Use
  Company Number: US-ABBVIE-13P-163-1158768-00

PATIENT
  Age: 24 Year
  Sex: Male

DRUGS (5)
  1. HUMIRA [Suspect]
     Indication: CROHN^S DISEASE
     Dosage: ON WEDNESDAY
     Dates: start: 201305
  2. MULTIVITAMIN [Concomitant]
     Indication: PRODUCT USED FOR UNKNOWN INDICATION
     Dosage: DAILY
  3. PROBIOTIC [Concomitant]
     Indication: PRODUCT USED FOR UNKNOWN INDICATION
     Dosage: DAILY
  4. TYLENOL [Concomitant]
     Indication: PAIN
  5. ADVIL [Concomitant]
     Indication: PAIN

REACTIONS (4)
  - Scleral discolouration [Unknown]
  - Chest pain [Recovered/Resolved]
  - Hepatic enzyme increased [Unknown]
  - Chest pain [Recovered/Resolved]
